FAERS Safety Report 23657472 (Version 1)
Quarter: 2024Q1

REPORT INFORMATION
  Report Type: Spontaneous
  Country: US (occurrence: None)
  Receive Date: 20240320
  Receipt Date: 20240320
  Transmission Date: 20240410
  Serious: Yes (Other)
  Sender: FDA-Public Use
  Company Number: None

PATIENT
  Age: 44 Year
  Sex: Female

DRUGS (1)
  1. HUMIRA [Suspect]
     Active Substance: ADALIMUMAB
     Indication: Rheumatoid arthritis
     Dosage: FREQUENCY : EVERY OTHER WEEK;?
     Route: 058
     Dates: start: 202108, end: 202109

REACTIONS (5)
  - Injection site reaction [None]
  - Injection site pain [None]
  - Injection site pain [None]
  - Injection site erythema [None]
  - Injection site swelling [None]

NARRATIVE: CASE EVENT DATE: 20210803
